FAERS Safety Report 21332038 (Version 9)
Quarter: 2025Q2

REPORT INFORMATION
  Report Type: Report from Study
  Country: US (occurrence: US)
  Receive Date: 20220914
  Receipt Date: 20250401
  Transmission Date: 20250716
  Serious: Yes (Death, Other)
  Sender: TAKEDA
  Company Number: US-TAKEDA-2021TUS024645

PATIENT
  Age: 60 Year
  Sex: Male
  Weight: 126 kg

DRUGS (42)
  1. HUMAN IMMUNOGLOBULIN G [Suspect]
     Active Substance: HUMAN IMMUNOGLOBULIN G
     Indication: Immunodeficiency common variable
     Dosage: 14 GRAM, 1/WEEK
     Dates: start: 20210402
  2. HUMAN IMMUNOGLOBULIN G [Suspect]
     Active Substance: HUMAN IMMUNOGLOBULIN G
     Dosage: 16 GRAM, 1/WEEK
  3. HUMAN IMMUNOGLOBULIN G [Suspect]
     Active Substance: HUMAN IMMUNOGLOBULIN G
     Dosage: UNK UNK, 1/WEEK
  4. HUMAN IMMUNOGLOBULIN G [Suspect]
     Active Substance: HUMAN IMMUNOGLOBULIN G
     Dosage: 13 GRAM, 1/WEEK
  5. HUMAN IMMUNOGLOBULIN G [Suspect]
     Active Substance: HUMAN IMMUNOGLOBULIN G
     Dosage: UNK UNK, 1/WEEK
  6. HUMAN IMMUNOGLOBULIN G [Suspect]
     Active Substance: HUMAN IMMUNOGLOBULIN G
     Dosage: 13 GRAM, 1/WEEK
  7. ACETAMINOPHEN [Concomitant]
     Active Substance: ACETAMINOPHEN
  8. EPINEPHRINE [Concomitant]
     Active Substance: EPINEPHRINE
  9. FLUTICASONE PROPIONATE [Concomitant]
     Active Substance: FLUTICASONE PROPIONATE
  10. ADDERALL [Concomitant]
     Active Substance: AMPHETAMINE ASPARTATE\AMPHETAMINE SULFATE\DEXTROAMPHETAMINE SACCHARATE\DEXTROAMPHETAMINE SULFATE
  11. SINGULAIR [Concomitant]
     Active Substance: MONTELUKAST SODIUM
  12. SODIUM CHLORIDE [Concomitant]
     Active Substance: SODIUM CHLORIDE
  13. COLCHICINE [Concomitant]
     Active Substance: COLCHICINE
  14. VITAMINS [Concomitant]
     Active Substance: VITAMINS
  15. ALLOPURINOL [Concomitant]
     Active Substance: ALLOPURINOL
  16. LIDOCAINE [Concomitant]
     Active Substance: LIDOCAINE
  17. COMPAZINE [Concomitant]
     Active Substance: PROCHLORPERAZINE MALEATE
  18. PROMETHAZINE HYDROCHLORIDE [Concomitant]
     Active Substance: PROMETHAZINE HYDROCHLORIDE
  19. DIPHENHYDRAMINE [Concomitant]
     Active Substance: DIPHENHYDRAMINE
  20. GABAPENTIN [Concomitant]
     Active Substance: GABAPENTIN
  21. SYMBICORT [Concomitant]
     Active Substance: BUDESONIDE\FORMOTEROL FUMARATE DIHYDRATE
     Dosage: UNK, BID
  22. MUCINEX [Concomitant]
     Active Substance: GUAIFENESIN
  23. Lmx [Concomitant]
  24. PROMETHAZINE [Concomitant]
     Active Substance: PROMETHAZINE HYDROCHLORIDE
  25. COMPAZINE [Concomitant]
     Active Substance: PROCHLORPERAZINE MALEATE
  26. FLONASE [Concomitant]
     Active Substance: FLUTICASONE PROPIONATE
  27. BUDESONIDE [Concomitant]
     Active Substance: BUDESONIDE
  28. XYLOMETAZOLINE HYDROCHLORIDE [Concomitant]
     Active Substance: XYLOMETAZOLINE HYDROCHLORIDE
  29. AMITRIPTYLINE [Concomitant]
     Active Substance: AMITRIPTYLINE
  30. SPIRIVA [Concomitant]
     Active Substance: TIOTROPIUM BROMIDE MONOHYDRATE
     Dosage: 1.25 MILLIGRAM, QD
  31. TYLENOL [Concomitant]
     Active Substance: ACETAMINOPHEN
  32. HYDROXYZINE [Concomitant]
     Active Substance: HYDROXYZINE HYDROCHLORIDE
     Dosage: 50 MILLIGRAM, QD
  33. HYDROXYZINE [Concomitant]
     Active Substance: HYDROXYZINE HYDROCHLORIDE
     Dosage: 100 MILLIGRAM, QD
  34. MONTELUKAST [Concomitant]
     Active Substance: MONTELUKAST
     Dosage: 10 MILLIGRAM, QD
  35. BENADRYL [Concomitant]
     Active Substance: DIPHENHYDRAMINE HYDROCHLORIDE
  36. NYSTATIN [Concomitant]
     Active Substance: NYSTATIN
  37. METHOCARBAMOL [Concomitant]
     Active Substance: METHOCARBAMOL
  38. ELAVIL [Concomitant]
     Active Substance: AMITRIPTYLINE HYDROCHLORIDE
  39. LYRICA [Concomitant]
     Active Substance: PREGABALIN
  40. PERCOCET [Concomitant]
     Active Substance: ACETAMINOPHEN\OXYCODONE HYDROCHLORIDE
  41. LUNESTA [Concomitant]
     Active Substance: ESZOPICLONE
  42. MELATONIN [Concomitant]
     Active Substance: MELATONIN

REACTIONS (23)
  - Death [Fatal]
  - Urinary tract infection [Unknown]
  - Bacterial infection [Unknown]
  - Tongue fungal infection [Unknown]
  - Infection [Unknown]
  - Candida infection [Unknown]
  - Drug intolerance [Unknown]
  - Joint injury [Unknown]
  - Infusion related reaction [Unknown]
  - COVID-19 [Unknown]
  - Taste disorder [Unknown]
  - Sinusitis [Unknown]
  - Infusion site haemorrhage [Unknown]
  - Influenza [Unknown]
  - Hot flush [Unknown]
  - Chills [Unknown]
  - Infusion site pruritus [Unknown]
  - Hypersensitivity [Unknown]
  - Erythema [Unknown]
  - Back pain [Unknown]
  - Migraine [Unknown]
  - Fatigue [Not Recovered/Not Resolved]
  - Pruritus [Unknown]

NARRATIVE: CASE EVENT DATE: 20211201
